FAERS Safety Report 17655404 (Version 1)
Quarter: 2020Q2

REPORT INFORMATION
  Report Type: Spontaneous
  Country: MX (occurrence: MX)
  Receive Date: 20200410
  Receipt Date: 20200410
  Transmission Date: 20200713
  Serious: Yes (Hospitalization, Other)
  Sender: FDA-Public Use
  Company Number: MX-TORRENT-00000170

PATIENT
  Sex: Female
  Weight: 60 kg

DRUGS (1)
  1. TORLAMO DT [Suspect]
     Active Substance: LAMOTRIGINE
     Indication: EPILEPSY
     Dosage: HALF A 50 MG TABLET/DAY
     Route: 048
     Dates: start: 20130901

REACTIONS (4)
  - Product availability issue [Unknown]
  - Intentional underdose [Unknown]
  - Seizure [Not Recovered/Not Resolved]
  - Wrong technique in product usage process [Unknown]

NARRATIVE: CASE EVENT DATE: 202002
